FAERS Safety Report 9082505 (Version 1)
Quarter: 2013Q1

REPORT INFORMATION
  Report Type: Spontaneous
  Country: US (occurrence: US)
  Receive Date: 20130130
  Receipt Date: 20130130
  Transmission Date: 20140127
  Serious: No
  Sender: FDA-Public Use
  Company Number: US-ABBOTT-12P-163-0898930-00

PATIENT
  Sex: Female

DRUGS (2)
  1. HUMIRA 40 MG/0.8 ML PEN [Suspect]
     Indication: EXPOSURE VIA BODY FLUID
     Route: 050
  2. HUMIRA 40 MG/0.8 ML PEN [Suspect]
     Indication: FOETAL EXPOSURE DURING PREGNANCY

REACTIONS (3)
  - Paternal drugs affecting foetus [Unknown]
  - Foetal exposure during pregnancy [Unknown]
  - Premature baby [Unknown]
